FAERS Safety Report 6279976-6 (Version None)
Quarter: 2009Q3

REPORT INFORMATION
  Report Type: 
  Country: None (occurrence: None)
  Receive Date: 20090723
  Receipt Date: 20090713
  Transmission Date: 20100115
  Serious: Yes (Other)
  Sender: FDA-Public Use
  Company Number: US-ELI_LILLY_AND_COMPANY-US200907002660

PATIENT
  Age: 65 Year
  Sex: Male

DRUGS (4)
  1. HUMALOG [Suspect]
     Indication: BLOOD GLUCOSE FLUCTUATION
     Dosage: UNK, UNK
     Dates: start: 19940101
  2. BYETTA [Concomitant]
     Indication: BLOOD GLUCOSE FLUCTUATION
     Dates: start: 20080101
  3. LANTUS [Concomitant]
     Indication: TYPE 2 DIABETES MELLITUS
     Dosage: 40 U, EACH EVENING
     Dates: start: 20050101
  4. NIASPAN [Concomitant]
     Dates: start: 20090601

REACTIONS (2)
  - BLOOD GLUCOSE INCREASED [None]
  - MYOCARDIAL INFARCTION [None]
